APPROVED DRUG PRODUCT: FLUOCINOLONE ACETONIDE
Active Ingredient: FLUOCINOLONE ACETONIDE
Strength: 0.025%
Dosage Form/Route: OINTMENT;TOPICAL
Application: A088046 | Product #001
Applicant: PHARMADERM DIV ALTANA INC
Approved: Dec 16, 1982 | RLD: No | RS: No | Type: DISCN